FAERS Safety Report 24381562 (Version 1)
Quarter: 2024Q4

REPORT INFORMATION
  Report Type: Spontaneous
  Country: US (occurrence: US)
  Receive Date: 20241001
  Receipt Date: 20241001
  Transmission Date: 20250115
  Serious: Yes (Other)
  Sender: NOVO NORDISK
  Company Number: US-NOVOPROD-1288595

PATIENT
  Sex: Male

DRUGS (1)
  1. TRESIBA [Suspect]
     Active Substance: INSULIN DEGLUDEC
     Indication: Diabetes mellitus
     Dosage: UNK
     Route: 058
     Dates: start: 2020

REACTIONS (4)
  - Organ failure [Not Recovered/Not Resolved]
  - Visual impairment [Not Recovered/Not Resolved]
  - End stage renal disease [Not Recovered/Not Resolved]
  - Blood pressure increased [Not Recovered/Not Resolved]
